FAERS Safety Report 8762723 (Version 1)
Quarter: 2012Q4

REPORT INFORMATION
  Report Type: Report from Study
  Country: US (occurrence: US)
  Receive Date: 20120831
  Receipt Date: 20120831
  Transmission Date: 20130627
  Serious: Yes (Hospitalization)
  Sender: FDA-Public Use
  Company Number: US-ROCHE-1108939

PATIENT
  Sex: Female

DRUGS (2)
  1. RANIBIZUMAB [Suspect]
     Indication: MACULAR DEGENERATION
     Route: 050
     Dates: start: 20120601
  2. RANIBIZUMAB [Suspect]
     Dosage: 3rd shot of ranibizumab
     Route: 042
     Dates: start: 20120816

REACTIONS (4)
  - Malaise [Unknown]
  - Hypersensitivity [Unknown]
  - Erythema [Unknown]
  - Chest pain [Unknown]
